FAERS Safety Report 20066121 (Version 1)
Quarter: 2021Q4

REPORT INFORMATION
  Report Type: Report from Study
  Country: ZA (occurrence: ZA)
  Receive Date: 20211114
  Receipt Date: 20211114
  Transmission Date: 20220303
  Serious: Yes (Hospitalization)
  Sender: FDA-Public Use
  Company Number: ZA-ABBVIE-21K-143-4154731-00

PATIENT
  Age: 57 Year
  Sex: Female
  Weight: 85.9 kg

DRUGS (3)
  1. HUMIRA [Suspect]
     Active Substance: ADALIMUMAB
     Indication: Ankylosing spondylitis
     Route: 058
     Dates: start: 20210522
  2. MELATONIN [Concomitant]
     Active Substance: MELATONIN
     Indication: Product used for unknown indication
  3. DULOXETINE HYDROCHLORIDE [Concomitant]
     Active Substance: DULOXETINE HYDROCHLORIDE
     Indication: Product used for unknown indication

REACTIONS (16)
  - Swollen tongue [Recovering/Resolving]
  - Feeling hot [Recovered/Resolved]
  - Pruritus [Recovered/Resolved]
  - Hypoaesthesia oral [Recovering/Resolving]
  - Pruritus [Recovered/Resolved]
  - Hypersensitivity [Recovering/Resolving]
  - Urticaria [Recovering/Resolving]
  - Erythema [Recovered/Resolved]
  - Injection site pruritus [Recovered/Resolved]
  - Abdominal pain upper [Recovered/Resolved]
  - Nausea [Recovered/Resolved]
  - Dyspnoea [Recovered/Resolved]
  - Paraesthesia oral [Recovering/Resolving]
  - Allergy to arthropod sting [Recovered/Resolved]
  - Pruritus [Recovered/Resolved]
  - Oropharyngeal discomfort [Recovering/Resolving]

NARRATIVE: CASE EVENT DATE: 20211013
